FAERS Safety Report 6815319-4 (Version None)
Quarter: 2010Q3

REPORT INFORMATION
  Report Type: 
  Country: None (occurrence: None)
  Receive Date: 20100701
  Receipt Date: 20100701
  Transmission Date: 20110219
  Serious: Yes (Hospitalization)
  Sender: FDA-Public Use
  Company Number: None

PATIENT
  Age: 59 Year
  Sex: Male
  Weight: 62.4 kg

DRUGS (1)
  1. MERCAPTOPURINE [Suspect]
     Indication: COLITIS ULCERATIVE
     Dosage: 150 MG EVERY DAY PO
     Route: 048
     Dates: start: 20091203, end: 20100114

REACTIONS (7)
  - BLOOD URINE PRESENT [None]
  - BONE MARROW FAILURE [None]
  - EPISTAXIS [None]
  - FEELING ABNORMAL [None]
  - HYPOPHAGIA [None]
  - PANCYTOPENIA [None]
  - SKIN LESION [None]
